FAERS Safety Report 7546566-4 (Version None)
Quarter: 2011Q2

REPORT INFORMATION
  Report Type: 
  Country: None (occurrence: None)
  Receive Date: 20110614
  Receipt Date: 20110328
  Transmission Date: 20111010
  Serious: No
  Sender: FDA-Public Use
  Company Number: US-BAYER-2011-026939

PATIENT
  Age: 41 Year
  Sex: Female

DRUGS (4)
  1. BETASERON [Suspect]
     Dosage: 6 MIU, QOD
     Route: 058
  2. NAPROXEN (ALEVE) [Concomitant]
  3. BETASERON [Suspect]
     Indication: RELAPSING-REMITTING MULTIPLE SCLEROSIS
     Dosage: 4 MIU, QOD
     Route: 058
     Dates: start: 20110307
  4. ADVIL LIQUI-GELS [Concomitant]

REACTIONS (17)
  - PYREXIA [None]
  - TREMOR [None]
  - APHASIA [None]
  - INFLUENZA LIKE ILLNESS [None]
  - INJECTION SITE PAIN [None]
  - FEELING ABNORMAL [None]
  - GENERAL PHYSICAL HEALTH DETERIORATION [None]
  - VISUAL IMPAIRMENT [None]
  - PARAESTHESIA [None]
  - ARTHRALGIA [None]
  - INJECTION SITE RASH [None]
  - GAIT DISTURBANCE [None]
  - PAIN [None]
  - SPEECH DISORDER [None]
  - VISION BLURRED [None]
  - MEMORY IMPAIRMENT [None]
  - MUSCULAR WEAKNESS [None]
